FAERS Safety Report 5153731-2 (Version None)
Quarter: 2006Q4

REPORT INFORMATION
  Report Type: 
  Country: None (occurrence: None)
  Receive Date: 20061120
  Receipt Date: 20061109
  Transmission Date: 20070319
  Serious: Yes (Other)
  Sender: FDA-Public Use
  Company Number: GB-JNJFOC-20060604928

PATIENT
  Sex: Male

DRUGS (1)
  1. REMICADE [Suspect]
     Indication: CROHN'S DISEASE
     Route: 042

REACTIONS (8)
  - AMYLOIDOSIS [None]
  - ANKYLOSING SPONDYLITIS [None]
  - DIARRHOEA [None]
  - DYSPHAGIA [None]
  - OVERGROWTH BACTERIAL [None]
  - PARESIS CRANIAL NERVE [None]
  - PYREXIA [None]
  - WEIGHT DECREASED [None]
